FAERS Safety Report 7766676-6 (Version None)
Quarter: 2011Q3

REPORT INFORMATION
  Report Type: 
  Country: None (occurrence: None)
  Receive Date: 20110922
  Receipt Date: 20110914
  Transmission Date: 20111222
  Serious: Yes (Other)
  Sender: FDA-Public Use
  Company Number: BR-JNJFOC-20110906397

PATIENT
  Age: 85 Year
  Sex: Female
  Weight: 70 kg

DRUGS (5)
  1. DICLOFENAC SODIUM [Concomitant]
     Indication: ANALGESIC THERAPY
     Route: 065
  2. ULTRACET [Suspect]
     Indication: OSTEOARTHRITIS
     Route: 048
     Dates: start: 20110905
  3. GINKGO BILOBA [Concomitant]
     Route: 065
     Dates: start: 19970101
  4. CLORANA [Concomitant]
     Route: 065
     Dates: start: 19970101
  5. AMITRIPTYLINE HYDROCHLORIDE [Concomitant]
     Indication: SLEEP DISORDER
     Route: 065
     Dates: start: 20110905

REACTIONS (10)
  - ABDOMINAL PAIN UPPER [None]
  - OEDEMA PERIPHERAL [None]
  - PAIN IN EXTREMITY [None]
  - HOT FLUSH [None]
  - FEELING ABNORMAL [None]
  - VISION BLURRED [None]
  - DIZZINESS [None]
  - SOMNOLENCE [None]
  - ABDOMINAL DISTENSION [None]
  - DRY MOUTH [None]
